FAERS Safety Report 11933111 (Version 1)
Quarter: 2016Q1

REPORT INFORMATION
  Report Type: Report from Study
  Country: PL (occurrence: PL)
  Receive Date: 20160121
  Receipt Date: 20160121
  Transmission Date: 20160526
  Serious: Yes (Other)
  Sender: FDA-Public Use
  Company Number: PL-ROCHE-1617227

PATIENT
  Age: 61 Year
  Sex: Female
  Weight: 84 kg

DRUGS (6)
  1. LORISTA [Concomitant]
     Active Substance: LOSARTAN POTASSIUM
     Indication: HYPERTENSION
     Dosage: 1 X DAY
     Route: 048
     Dates: start: 2014
  2. HYDROCHLOROTHIAZIDE. [Concomitant]
     Active Substance: HYDROCHLOROTHIAZIDE
     Indication: HYPERTENSION
     Dosage: 1 X DAY
     Route: 048
     Dates: start: 2014
  3. NALGESIN FORTE (NAPROXEN SODIUM) [Concomitant]
     Indication: RHEUMATOID ARTHRITIS
     Dosage: 2 X DAY
     Route: 048
     Dates: start: 201405
  4. NOLPAZA [Concomitant]
     Active Substance: PANTOPRAZOLE SODIUM
     Indication: GASTRIC DISORDER
     Dosage: 1 X DAY
     Route: 048
     Dates: start: 2012
  5. ROSWERA [Concomitant]
     Indication: DYSLIPIDAEMIA
     Dosage: 1 X DAY
     Route: 048
     Dates: start: 201502
  6. ROACTEMRA [Suspect]
     Active Substance: TOCILIZUMAB
     Indication: RHEUMATOID ARTHRITIS
     Route: 042
     Dates: start: 20150206

REACTIONS (2)
  - Blood cholesterol increased [Unknown]
  - Lipids abnormal [Recovered/Resolved]

NARRATIVE: CASE EVENT DATE: 201508
